FAERS Safety Report 5581544-6 (Version None)
Quarter: 2008Q1

REPORT INFORMATION
  Report Type: 
  Country: None (occurrence: None)
  Receive Date: 20080102
  Receipt Date: 20080102
  Transmission Date: 20080703
  Serious: Yes (Disabling, Other)
  Sender: FDA-Public Use
  Company Number: None

PATIENT
  Age: 37 Year
  Sex: Female
  Weight: 74.8435 kg

DRUGS (1)
  1. EFFEXOR XR [Suspect]
     Indication: DEPRESSION
     Dosage: DAILY
     Dates: start: 20030115, end: 20071229

REACTIONS (5)
  - MYOCARDIAL INFARCTION [None]
  - PALPITATIONS [None]
  - PANIC DISORDER [None]
  - TREMOR [None]
  - WITHDRAWAL SYNDROME [None]
